FAERS Safety Report 13868006 (Version 2)
Quarter: 2017Q3

REPORT INFORMATION
  Report Type: Report from Study
  Country: US (occurrence: US)
  Receive Date: 20170814
  Receipt Date: 20170905
  Transmission Date: 20171127
  Serious: Yes (Other)
  Sender: FDA-Public Use
  Company Number: US-GILEAD-2017-0280291

PATIENT
  Age: 64 Year
  Sex: Male
  Weight: 108.39 kg

DRUGS (8)
  1. VITAMIN C [Concomitant]
     Active Substance: ASCORBIC ACID
  2. NORVASC [Concomitant]
     Active Substance: AMLODIPINE BESYLATE
  3. LEDIPASVIR/SOFOSBUVIR [Suspect]
     Active Substance: LEDIPASVIR\SOFOSBUVIR
     Indication: CHRONIC HEPATITIS C
     Dosage: 1 DF, UNK
     Route: 048
     Dates: start: 20170509, end: 20170801
  4. VIBRA-TABS                         /00055702/ [Concomitant]
  5. DELTASONE [Concomitant]
     Active Substance: PREDNISONE
  6. VITAMIN D3 [Concomitant]
     Active Substance: CHOLECALCIFEROL
  7. MULTIVITAMIN                       /00097801/ [Concomitant]
     Active Substance: VITAMINS
  8. ALBUTEROL                          /00139501/ [Concomitant]
     Active Substance: ALBUTEROL

REACTIONS (10)
  - Renal mass [Not Recovered/Not Resolved]
  - Cough [Not Recovered/Not Resolved]
  - Asthenia [Not Recovered/Not Resolved]
  - Melaena [Not Recovered/Not Resolved]
  - Glucose tolerance impaired [Unknown]
  - Bronchitis [Unknown]
  - Fatigue [Recovered/Resolved]
  - Haematochezia [Not Recovered/Not Resolved]
  - Renal cyst [Unknown]
  - Wheezing [Not Recovered/Not Resolved]

NARRATIVE: CASE EVENT DATE: 201706
